FAERS Safety Report 14413826 (Version 1)
Quarter: 2018Q1

REPORT INFORMATION
  Report Type: Spontaneous
  Country: US (occurrence: US)
  Receive Date: 20180117
  Receipt Date: 20180117
  Transmission Date: 20180509
  Serious: No
  Sender: FDA-Public Use
  Company Number: None

PATIENT
  Age: 12 Year
  Sex: Female

DRUGS (1)
  1. VIGABATRIN POWDER 500MG PAR PHARMACEUTICALS [Suspect]
     Active Substance: VIGABATRIN
     Indication: EPILEPSY
     Route: 048
     Dates: start: 20171219

REACTIONS (2)
  - Asthenia [None]
  - Eye movement disorder [None]

NARRATIVE: CASE EVENT DATE: 20180110
